FAERS Safety Report 6454218-7 (Version None)
Quarter: 2009Q4

REPORT INFORMATION
  Report Type: 
  Country: None (occurrence: None)
  Receive Date: 20091124
  Receipt Date: 20091118
  Transmission Date: 20100525
  Serious: Yes (Hospitalization, Other)
  Sender: FDA-Public Use
  Company Number: FR-BRISTOL-MYERS SQUIBB COMPANY-14864409

PATIENT
  Age: 70 Year
  Sex: Male

DRUGS (11)
  1. TAXOL [Suspect]
     Indication: LUNG NEOPLASM MALIGNANT
     Route: 042
  2. TRANDATE [Concomitant]
  3. SOLUPRED [Concomitant]
     Dosage: FORM - TABLET
  4. KARDEGIC [Concomitant]
     Dosage: FORM - SACHET
  5. VASTEN TABS 20 MG [Concomitant]
  6. TRIATEC [Concomitant]
     Dosage: FORM - TABLET
  7. PROGRAF [Concomitant]
     Dosage: FORM - CAPSULE
  8. EFFERALGAN CODEINE EFFER TABS [Concomitant]
  9. ATARAX [Concomitant]
     Dosage: FORM - TABLET
  10. LERCANIDIPINE [Concomitant]
     Dosage: FORM - TABLET
  11. NOVOMIX [Concomitant]

REACTIONS (4)
  - AGRANULOCYTOSIS [None]
  - ATRIAL FIBRILLATION [None]
  - MALAISE [None]
  - ORTHOSTATIC HYPOTENSION [None]
